FAERS Safety Report 7775099-5 (Version None)
Quarter: 2011Q3

REPORT INFORMATION
  Report Type: 
  Country: None (occurrence: None)
  Receive Date: 20110923
  Receipt Date: 20110920
  Transmission Date: 20111222
  Serious: Yes (Hospitalization)
  Sender: FDA-Public Use
  Company Number: CH-ROCHE-803786

PATIENT
  Sex: Female
  Weight: 59 kg

DRUGS (7)
  1. LYRICA [Concomitant]
     Dates: start: 20110906
  2. PANTOPRAZOLE [Concomitant]
     Dates: start: 20110501
  3. NOVALGIN [Concomitant]
     Dates: start: 20110601
  4. LEVOTHYROXINE SODIUM [Concomitant]
     Dates: start: 20090501
  5. ZELBORAF [Suspect]
     Route: 048
     Dates: start: 20110713
  6. REMERON [Concomitant]
     Dates: start: 20110501
  7. DEXAMETHASONE [Concomitant]
     Dates: start: 20110501

REACTIONS (1)
  - BREAST DISCOMFORT [None]
